FAERS Safety Report 4890962-0 (Version None)
Quarter: 2006Q1

REPORT INFORMATION
  Report Type: 
  Country: None (occurrence: None)
  Receive Date: 20060125
  Receipt Date: 20060116
  Transmission Date: 20060701
  Serious: Yes (Other)
  Sender: FDA-Public Use
  Company Number: PHNU2006DE00559

PATIENT
  Age: 10 Year
  Sex: Female

DRUGS (1)
  1. RITALIN [Suspect]
     Dosage: 10MG/DAY
     Route: 048
     Dates: start: 20030101

REACTIONS (1)
  - VISUAL FIELD DEFECT [None]
